FAERS Safety Report 21315164 (Version 2)
Quarter: 2022Q4

REPORT INFORMATION
  Report Type: Spontaneous
  Country: JP (occurrence: JP)
  Receive Date: 20220909
  Receipt Date: 20221004
  Transmission Date: 20230113
  Serious: No
  Sender: FDA-Public Use
  Company Number: JP-sptaiwan-2022SMP005048

PATIENT
  Age: 26 Year
  Sex: Female

DRUGS (3)
  1. LATUDA [Suspect]
     Active Substance: LURASIDONE HYDROCHLORIDE
     Indication: Bipolar disorder
     Dosage: 20 MG, QD
     Route: 048
     Dates: start: 20220405, end: 20220613
  2. LATUDA [Suspect]
     Active Substance: LURASIDONE HYDROCHLORIDE
     Dosage: 30 MG, QD
     Route: 048
     Dates: start: 20220614, end: 20220801
  3. LATUDA [Suspect]
     Active Substance: LURASIDONE HYDROCHLORIDE
     Dosage: 40 MG, QD
     Route: 048
     Dates: start: 20220802

REACTIONS (3)
  - Menstruation irregular [Not Recovered/Not Resolved]
  - Off label use [Unknown]
  - Prescribed underdose [Unknown]

NARRATIVE: CASE EVENT DATE: 20220614
